FAERS Safety Report 5816515-5 (Version None)
Quarter: 2008Q3

REPORT INFORMATION
  Report Type: 
  Country: None (occurrence: None)
  Receive Date: 20080717
  Receipt Date: 20080717
  Transmission Date: 20090109
  Serious: Yes (Hospitalization)
  Sender: FDA-Public Use
  Company Number: None

PATIENT
  Age: 83 Year
  Sex: Male
  Weight: 65.7716 kg

DRUGS (2)
  1. NAMENDA [Suspect]
     Indication: CONFUSIONAL STATE
     Dosage: 5 MG ONCE PER DAY
     Dates: start: 20080525, end: 20080603
  2. NAMENDA [Suspect]
     Indication: CONFUSIONAL STATE
     Dosage: 5 MG ONCE PER DAY
     Dates: start: 20080611, end: 20080613

REACTIONS (2)
  - AGGRESSION [None]
  - ANXIETY [None]
